FAERS Safety Report 12758604 (Version 1)
Quarter: 2016Q3

REPORT INFORMATION
  Report Type: Spontaneous
  Country: US (occurrence: US)
  Receive Date: 20160917
  Receipt Date: 20160917
  Transmission Date: 20161109
  Serious: No
  Sender: FDA-Public Use
  Company Number: None

PATIENT
  Age: 15 Year
  Sex: Male
  Weight: 65.25 kg

DRUGS (4)
  1. HYOSCYAMINE .125 SUBLINGUAL TABS [Suspect]
     Active Substance: HYOSCYAMINE
     Indication: ABDOMINAL PAIN UPPER
     Route: 060
     Dates: start: 20160901, end: 20160916
  2. VSL#3 PROBIOTIC [Concomitant]
  3. MULTIVITAMIN [Concomitant]
     Active Substance: VITAMINS
  4. CARAFATE [Concomitant]
     Active Substance: SUCRALFATE

REACTIONS (4)
  - Vision blurred [None]
  - Dizziness [None]
  - Syncope [None]
  - Fatigue [None]

NARRATIVE: CASE EVENT DATE: 20160901
